FAERS Safety Report 6294520-5 (Version None)
Quarter: 2009Q3

REPORT INFORMATION
  Report Type: 
  Country: None (occurrence: None)
  Receive Date: 20090730
  Receipt Date: 20090720
  Transmission Date: 20100115
  Serious: Yes (Death)
  Sender: FDA-Public Use
  Company Number: 2009008687

PATIENT
  Sex: Female

DRUGS (2)
  1. FENTORA [Suspect]
     Dosage: BU
     Dates: start: 20090101
  2. HYDROMORPHONE HCL [Concomitant]

REACTIONS (2)
  - RENAL CYST INFECTION [None]
  - SEPSIS [None]
